FAERS Safety Report 5958305-9 (Version None)
Quarter: 2008Q4

REPORT INFORMATION
  Report Type: 
  Country: None (occurrence: None)
  Receive Date: 20081119
  Receipt Date: 20081112
  Transmission Date: 20090506
  Serious: Yes (Hospitalization, Disabling, Other)
  Sender: FDA-Public Use
  Company Number: US-MERCK-0612USA00525

PATIENT
  Age: 73 Year
  Sex: Female
  Weight: 48 kg

DRUGS (6)
  1. FOSAMAX [Suspect]
     Indication: OSTEOPOROSIS
     Route: 048
     Dates: start: 20030407, end: 20061205
  2. FOSAMAX [Suspect]
     Indication: BONE DISORDER
     Route: 048
     Dates: start: 20030407, end: 20061205
  3. [THERAPY UNSPECIFIED] [Concomitant]
     Route: 065
  4. LIPITOR [Concomitant]
     Route: 065
  5. PAXIL [Concomitant]
     Route: 065
  6. EVISTA [Concomitant]
     Route: 065

REACTIONS (16)
  - ACCELERATED HYPERTENSION [None]
  - ANAEMIA [None]
  - ARTHROPATHY [None]
  - BACK PAIN [None]
  - GINGIVAL SWELLING [None]
  - HYPERLIPIDAEMIA [None]
  - HYPERTENSION [None]
  - IMPAIRED HEALING [None]
  - JAW DISORDER [None]
  - LIPOMA [None]
  - LUNG NEOPLASM MALIGNANT [None]
  - OROPHARYNGEAL PAIN [None]
  - OSTEONECROSIS [None]
  - OSTEOPOROSIS [None]
  - SPINAL COMPRESSION FRACTURE [None]
  - SPINAL DECOMPRESSION [None]
